FAERS Safety Report 4900614-6 (Version None)
Quarter: 2006Q1

REPORT INFORMATION
  Report Type: 
  Country: None (occurrence: None)
  Receive Date: 20060203
  Receipt Date: 20060117
  Transmission Date: 20060701
  Serious: Yes (Death, Other)
  Sender: FDA-Public Use
  Company Number: 2006UW00775

PATIENT
  Age: 83 Year
  Sex: Male

DRUGS (3)
  1. SEROQUEL [Suspect]
     Indication: DEMENTIA
     Route: 048
     Dates: start: 20051201
  2. SEROQUEL [Suspect]
     Route: 048
  3. UNSPECIFIED MEDICATIONS [Concomitant]

REACTIONS (3)
  - MEDICATION ERROR [None]
  - NEUROLEPTIC MALIGNANT SYNDROME [None]
  - RESPIRATORY FAILURE [None]
